FAERS Safety Report 12942431 (Version 2)
Quarter: 2016Q4

REPORT INFORMATION
  Report Type: Spontaneous
  Country: US (occurrence: US)
  Receive Date: 20161115
  Receipt Date: 20161122
  Transmission Date: 20170207
  Serious: No
  Sender: FDA-Public Use
  Company Number: US-JNJFOC-20161020532

PATIENT
  Age: 64 Year
  Sex: Female
  Weight: 65.32 kg

DRUGS (3)
  1. BENZTROPINE [Concomitant]
     Active Substance: BENZTROPINE
     Route: 065
  2. INVEGA TRINZA [Suspect]
     Active Substance: PALIPERIDONE PALMITATE
     Indication: THINKING ABNORMAL
     Route: 030
     Dates: start: 20160322, end: 20160830
  3. GEODON [Concomitant]
     Active Substance: ZIPRASIDONE HYDROCHLORIDE\ZIPRASIDONE MESYLATE
     Indication: DRUG THERAPY
     Route: 065

REACTIONS (13)
  - Hallucination [Recovering/Resolving]
  - Depression [Recovering/Resolving]
  - Condition aggravated [Recovered/Resolved]
  - Anger [Unknown]
  - Off label use [Unknown]
  - Fear [Recovered/Resolved]
  - Drug effect incomplete [Unknown]
  - Feeling abnormal [Unknown]
  - Irritability [Unknown]
  - Poor quality sleep [Unknown]
  - Anxiety [Recovered/Resolved]
  - Product use issue [Unknown]
  - Mood swings [Recovering/Resolving]

NARRATIVE: CASE EVENT DATE: 20160830
